FAERS Safety Report 23167619 (Version 2)
Quarter: 2023Q4

REPORT INFORMATION
  Report Type: Report from Study
  Country: US (occurrence: US)
  Receive Date: 20231109
  Receipt Date: 20231130
  Transmission Date: 20240109
  Serious: No
  Sender: FDA-Public Use
  Company Number: US-ALXN-202310USA000258US

PATIENT
  Sex: Female
  Weight: 59.864 kg

DRUGS (2)
  1. STRENSIQ [Suspect]
     Active Substance: ASFOTASE ALFA
     Indication: Product used for unknown indication
     Dosage: UNK
     Route: 065
  2. TETRACYCLINE HYDROCHLORIDE [Suspect]
     Active Substance: TETRACYCLINE HYDROCHLORIDE
     Indication: Infection
     Dosage: UNK
     Route: 065

REACTIONS (4)
  - Bronchitis [Unknown]
  - Laryngitis [Unknown]
  - Abdominal discomfort [Unknown]
  - Weight decreased [Unknown]
